FAERS Safety Report 13039332 (Version 1)
Quarter: 2016Q4

REPORT INFORMATION
  Report Type: Report from Study
  Country: TR (occurrence: TR)
  Receive Date: 20161219
  Receipt Date: 20161219
  Transmission Date: 20170207
  Serious: Yes (Death, Congenital Anomaly, Other)
  Sender: FDA-Public Use
  Company Number: TR-EMD SERONO-8099765

PATIENT

DRUGS (1)
  1. REBIF [Suspect]
     Active Substance: INTERFERON BETA-1A
     Indication: MULTIPLE SCLEROSIS
     Route: 065

REACTIONS (5)
  - Pulmonary oedema [Unknown]
  - Malformation venous [Unknown]
  - Exposure via father [Recovered/Resolved]
  - Death [Fatal]
  - Trisomy 18 [Unknown]

NARRATIVE: CASE EVENT DATE: 201604
